FAERS Safety Report 21916851 (Version 1)
Quarter: 2023Q1

REPORT INFORMATION
  Report Type: Spontaneous
  Country: None (occurrence: US)
  Receive Date: 20230126
  Receipt Date: 20230126
  Transmission Date: 20230417
  Serious: Yes (Death)
  Sender: FDA-Public Use
  Company Number: US-ITALFARMACO SPA-2137090

PATIENT
  Age: 62 Year
  Sex: Female

DRUGS (8)
  1. TIGLUTIK [Suspect]
     Active Substance: RILUZOLE
     Indication: Amyotrophic lateral sclerosis
     Dates: start: 20220215
  2. ATROPINE [Concomitant]
     Active Substance: ATROPINE
  3. CLARITINE (LORATADINE) [Concomitant]
  4. GLYCOPYRROLATE [Concomitant]
     Active Substance: GLYCOPYRROLATE
  5. IMIPRAMINE (IMIPRAMINE) [Concomitant]
  6. LISINOPRIL [Concomitant]
     Active Substance: LISINOPRIL
  7. TRAMADOL [Concomitant]
     Active Substance: TRAMADOL
  8. TYLENOL [Concomitant]
     Active Substance: ACETAMINOPHEN

REACTIONS (1)
  - Death [Fatal]
